FAERS Safety Report 5616618-4 (Version None)
Quarter: 2008Q1

REPORT INFORMATION
  Report Type: 
  Country: None (occurrence: None)
  Receive Date: 20080207
  Receipt Date: 20071016
  Transmission Date: 20080703
  Serious: No
  Sender: FDA-Public Use
  Company Number: A0687974A

PATIENT
  Age: 31 Year
  Sex: Male

DRUGS (2)
  1. PAXIL CR [Suspect]
     Dosage: 25MG PER DAY
     Route: 048
     Dates: start: 20061008
  2. PROTONIX [Concomitant]

REACTIONS (5)
  - ANOREXIA [None]
  - BLOOD TESTOSTERONE DECREASED [None]
  - DRY MOUTH [None]
  - SINUSITIS [None]
  - TONGUE DISCOLOURATION [None]
